FAERS Safety Report 5162554-X (Version None)
Quarter: 2006Q4

REPORT INFORMATION
  Report Type: 
  Country: None (occurrence: None)
  Receive Date: 20061201
  Receipt Date: 20061109
  Transmission Date: 20070319
  Serious: Yes (Other)
  Sender: FDA-Public Use
  Company Number: FI-NOVO NORDISK A/S-258558

PATIENT
  Age: 94 Year
  Sex: Female

DRUGS (16)
  1. VAGIFEM [Suspect]
     Indication: LOCAL REACTION
     Dosage: UNK, UNK
     Dates: start: 20061001, end: 20061001
  2. VAGIFEM [Suspect]
     Indication: INCONTINENCE
  3. VAGIFEM [Suspect]
     Indication: URINARY TRACT DISORDER
  4. ATACAND [Concomitant]
     Dosage: 16 MG, QD
     Route: 048
  5. ATRODUAL [Concomitant]
     Dosage: UNK, PRN
  6. ATROVENT COMP [Concomitant]
     Dosage: 40/100 MG ONE SPRAY TWO TIMES WHEN NEEDED
  7. EMCONCOR                           /00802601/ [Concomitant]
     Dosage: 2.5 MG, QD
     Route: 048
  8. FURESIS [Concomitant]
     Dosage: 40 MG, BID
     Route: 048
  9. ISMOX [Concomitant]
     Dosage: 10 MG, BID
     Route: 048
  10. LEVOLAC [Concomitant]
  11. MAREVAN [Concomitant]
     Dosage: 5 MG, UNK
  12. NITROMEX [Concomitant]
     Dosage: UNK, PRN
  13. SERETIDE                           /01420901/ [Concomitant]
     Dosage: UNK, BID
  14. SPARTOCINE                         /00023501/ [Concomitant]
     Dosage: 250 MG, QD
     Route: 048
  15. THYROXIN [Concomitant]
     Dosage: .025 MG, QD
     Route: 048
  16. ZANIDIP [Concomitant]
     Dosage: 15 MG, UNK
     Route: 048

REACTIONS (2)
  - CHEST PAIN [None]
  - OEDEMA PERIPHERAL [None]
